FAERS Safety Report 4975137-9 (Version None)
Quarter: 2006Q2

REPORT INFORMATION
  Report Type: 
  Country: None (occurrence: None)
  Receive Date: 20060411
  Receipt Date: 20060328
  Transmission Date: 20061013
  Serious: Yes (Hospitalization)
  Sender: FDA-Public Use
  Company Number: 2006PI000137

PATIENT
  Age: 64 Year
  Weight: 92 kg

DRUGS (5)
  1. RETEPLASE (RETEPLASE) [Suspect]
     Indication: ACUTE MYOCARDIAL INFARCTION
     Dosage: 5 IU X1 IVB
     Route: 040
     Dates: start: 20050507, end: 20050507
  2. REOPRO [Suspect]
     Indication: ACUTE MYOCARDIAL INFARCTION
     Dosage: 11.5 ML X1 IVB ; 4.0 ML QH
     Dates: start: 20050507, end: 20050507
  3. ACENOCOUMAROL [Concomitant]
  4. ASPIRIN [Concomitant]
  5. HEPARIN [Concomitant]

REACTIONS (4)
  - ACTIVATED PARTIAL THROMBOPLASTIN TIME PROLONGED [None]
  - EPISTAXIS [None]
  - PROTHROMBIN TIME PROLONGED [None]
  - PUNCTURE SITE HAEMORRHAGE [None]
